FAERS Safety Report 5958017-1 (Version None)
Quarter: 2008Q4

REPORT INFORMATION
  Report Type: 
  Country: None (occurrence: None)
  Receive Date: 20081119
  Receipt Date: 20081114
  Transmission Date: 20090506
  Serious: Yes (Life-Threatening, Other)
  Sender: FDA-Public Use
  Company Number: PHHY2008BR28489

PATIENT
  Age: 81 Year
  Sex: Female
  Weight: 48 kg

DRUGS (5)
  1. FORASEQ [Suspect]
     Indication: NERVOUSNESS
     Dosage: 12/400 MCG, 1 INHALATION/DAY
     Dates: start: 20000101
  2. FORASEQ [Suspect]
     Indication: ASTHMA
     Dosage: 12/400 MCG, 2 INHALATION/DAY
  3. NOVALGINA [Concomitant]
     Indication: HEADACHE
     Dosage: UNK
  4. LEXOTAN [Concomitant]
     Indication: NERVOUSNESS
     Dosage: HALF TABLET
     Route: 048
  5. AEROLIN [Concomitant]
     Dosage: 1 INHALATIONS A DAY

REACTIONS (12)
  - APPARENT LIFE THREATENING EVENT [None]
  - ASTHMA [None]
  - COUGH [None]
  - DYSPNOEA [None]
  - ECONOMIC PROBLEM [None]
  - HYPERSENSITIVITY [None]
  - NERVOUSNESS [None]
  - PYREXIA [None]
  - SYNCOPE [None]
  - TREATMENT NONCOMPLIANCE [None]
  - VOMITING [None]
  - WRONG DRUG ADMINISTERED [None]
